FAERS Safety Report 12741905 (Version 1)
Quarter: 2016Q3

REPORT INFORMATION
  Report Type: Spontaneous
  Country: US (occurrence: US)
  Receive Date: 20160913
  Receipt Date: 20160913
  Transmission Date: 20161109
  Serious: Yes (Other)
  Sender: FDA-Public Use
  Company Number: None

PATIENT
  Age: 53 Year
  Sex: Female

DRUGS (1)
  1. HARVONI [Suspect]
     Active Substance: LEDIPASVIR\SOFOSBUVIR
     Indication: ACUTE HEPATITIS C
     Route: 048
     Dates: start: 20151106, end: 20160125

REACTIONS (4)
  - Rash [None]
  - Skin exfoliation [None]
  - Vitiligo [None]
  - Pruritus [None]

NARRATIVE: CASE EVENT DATE: 20160809
